FAERS Safety Report 15877367 (Version 1)
Quarter: 2019Q1

REPORT INFORMATION
  Report Type: Spontaneous
  Country: US (occurrence: US)
  Receive Date: 20190128
  Receipt Date: 20190128
  Transmission Date: 20190417
  Serious: No
  Sender: FDA-Public Use
  Company Number: US-SA-2019SA017673

PATIENT
  Age: 55 Year
  Sex: Female

DRUGS (1)
  1. LANTUS [Suspect]
     Active Substance: INSULIN GLARGINE
     Indication: DIABETES MELLITUS
     Dosage: 16 UNITS TO INCREASE BY 2 UNITS EACH DAY UNTIL THE BS^S ARE AT 130MG/DL WITH A MAXIMUM DOSE OF 50 UN
     Route: 065
     Dates: start: 201701

REACTIONS (2)
  - Wrong technique in device usage process [Unknown]
  - Device operational issue [Unknown]
